FAERS Safety Report 14322092 (Version 5)
Quarter: 2024Q1

REPORT INFORMATION
  Report Type: Other
  Country: BE (occurrence: BE)
  Receive Date: 20171225
  Receipt Date: 20240312
  Transmission Date: 20240409
  Serious: Yes (Death, Hospitalization)
  Sender: FDA-Public Use
  Company Number: BE-STADA-153253

PATIENT
  Age: 27 Year
  Sex: Female

DRUGS (19)
  1. VALGANCICLOVIR [Suspect]
     Active Substance: VALGANCICLOVIR
     Indication: Cytomegalovirus infection
     Route: 065
  2. MYCOPHENOLATE MOFETIL [Suspect]
     Active Substance: MYCOPHENOLATE MOFETIL
     Indication: Prophylaxis against graft versus host disease
     Route: 065
  3. BUSULFAN [Suspect]
     Active Substance: BUSULFAN
     Indication: Bone marrow conditioning regimen
     Route: 065
  4. CYCLOPHOSPHAMIDE [Suspect]
     Active Substance: CYCLOPHOSPHAMIDE
     Indication: Bone marrow conditioning regimen
     Route: 050
  5. CYCLOPHOSPHAMIDE [Suspect]
     Active Substance: CYCLOPHOSPHAMIDE
     Indication: Bone marrow conditioning regimen
     Route: 041
  6. THYMOCYTE IMMUNE GLOBULIN NOS [Suspect]
     Active Substance: THYMOCYTE IMMUNE GLOBULIN NOS
     Indication: Bone marrow conditioning regimen
     Route: 065
  7. POSACONAZOLE [Suspect]
     Active Substance: POSACONAZOLE
     Indication: Oral candidiasis
     Route: 065
  8. TACROLIMUS [Suspect]
     Active Substance: TACROLIMUS
     Indication: Prophylaxis against graft versus host disease
     Route: 065
  9. FLUDARABINE PHOSPHATE [Suspect]
     Active Substance: FLUDARABINE PHOSPHATE
     Indication: Bone marrow conditioning regimen
     Route: 065
  10. METRONIDAZOLE [Concomitant]
     Active Substance: METRONIDAZOLE
     Route: 065
  11. URSODIOL [Concomitant]
     Active Substance: URSODIOL
     Route: 065
  12. CASPOFUNGIN [Concomitant]
     Active Substance: CASPOFUNGIN
     Route: 065
  13. PIPERACILLIN SODIUM\TAZOBACTAM SODIUM [Concomitant]
     Active Substance: PIPERACILLIN SODIUM\TAZOBACTAM SODIUM
     Route: 065
  14. CEFTAZIDIME [Concomitant]
     Active Substance: CEFTAZIDIME
     Route: 065
  15. PRIVIGEN [Concomitant]
     Active Substance: HUMAN IMMUNOGLOBULIN G
     Indication: Supportive care
     Route: 065
  16. FOSCAVIR [Concomitant]
     Active Substance: FOSCARNET SODIUM
     Indication: Bone marrow conditioning regimen
     Route: 065
  17. CYTARABINE [Concomitant]
     Active Substance: CYTARABINE
     Indication: Acute myeloid leukaemia
     Route: 065
  18. IDARUBICIN [Concomitant]
     Active Substance: IDARUBICIN
     Indication: Acute myeloid leukaemia
     Route: 065
  19. IDARUBICIN [Concomitant]
     Active Substance: IDARUBICIN
     Indication: Salvage therapy

REACTIONS (23)
  - Pain [Fatal]
  - Pancytopenia [Fatal]
  - Hepatic cytolysis [Fatal]
  - Hepatic failure [Fatal]
  - Staphylococcal sepsis [Fatal]
  - Myelosuppression [Fatal]
  - Liver function test abnormal [Fatal]
  - Oral candidiasis [Fatal]
  - Adenoviral hepatitis [Fatal]
  - Cholestasis [Fatal]
  - Neutropenia [Fatal]
  - Disseminated intravascular coagulation [Fatal]
  - Hepatic necrosis [Fatal]
  - Toxicity to various agents [Fatal]
  - Cytomegalovirus infection reactivation [Fatal]
  - Jugular vein haemorrhage [Fatal]
  - Rash [Fatal]
  - Hepatomegaly [Fatal]
  - Pyrexia [Fatal]
  - Diarrhoea [Fatal]
  - Oedema [Fatal]
  - Ascites [Unknown]
  - Venoocclusive liver disease [Unknown]
